FAERS Safety Report 9591407 (Version 1)
Quarter: 2013Q4

REPORT INFORMATION
  Report Type: Spontaneous
  Country: US (occurrence: US)
  Receive Date: 20131003
  Receipt Date: 20131003
  Transmission Date: 20140711
  Serious: No
  Sender: FDA-Public Use
  Company Number: US-AMGEN-USASP2012080233

PATIENT
  Age: 60 Year
  Sex: Female
  Weight: 48.98 kg

DRUGS (4)
  1. ENBREL [Suspect]
     Indication: RHEUMATOID ARTHRITIS
     Dosage: 50 MG, QWK
     Route: 058
  2. PREMARIN [Concomitant]
     Dosage: 1.25 MG, UNK
     Route: 048
  3. CENTRUM SILVER                     /02363801/ [Concomitant]
     Dosage: UNK
     Route: 048
  4. CITRACAL + D                       /01438101/ [Concomitant]
     Dosage: UNK
     Route: 048

REACTIONS (1)
  - Upper respiratory tract infection [Unknown]
